FAERS Safety Report 4316913-5 (Version None)
Quarter: 2004Q1

REPORT INFORMATION
  Report Type: 
  Country: None (occurrence: None)
  Receive Date: 20040308
  Receipt Date: 20040106
  Transmission Date: 20041129
  Serious: Yes (Disabling)
  Sender: FDA-Public Use
  Company Number: ALMO2004001

PATIENT
  Age: 38 Year
  Sex: Female

DRUGS (6)
  1. ALMOGRAN [Suspect]
     Indication: MIGRAINE
     Dosage: 2 DF DAILY PO
     Route: 048
     Dates: start: 20021201
  2. ACUPAN [Concomitant]
  3. BI-PROFENID [Concomitant]
  4. VISCERALOGINE [Concomitant]
  5. VALIUM [Concomitant]
  6. ZOMIGORO [Concomitant]

REACTIONS (1)
  - DRUG ABUSER [None]
